FAERS Safety Report 9024705 (Version 2)
Quarter: 2013Q1

REPORT INFORMATION
  Report Type: Spontaneous
  Country: US (occurrence: None)
  Receive Date: 20121231
  Receipt Date: 20130131
  Transmission Date: 20140127
  Serious: Yes (Other)
  Sender: FDA-Public Use
  Company Number: JPI-P-027842

PATIENT
  Age: 35 Year
  Sex: Female

DRUGS (6)
  1. XYREM (500 MILLIGRAM/MILLILITERS, SOLUTION) (SODIUM OXYBATE) [Suspect]
     Indication: SLEEP DISORDER
     Dosage: 6 GM (3 GM, 2 IN 1 D)
     Route: 048
     Dates: start: 20050705
  2. DULOXETINE HYDROCHLORIDE (CYMBALTA) [Concomitant]
  3. ARIPIPRAZOLE [Concomitant]
  4. CLONAZEPAM [Concomitant]
  5. BENZOTROPINE [Concomitant]
  6. PREGABALINE (LYRICA) [Concomitant]

REACTIONS (1)
  - Ankle operation [None]
